FAERS Safety Report 22227467 (Version 1)
Quarter: 2023Q2

REPORT INFORMATION
  Report Type: Spontaneous
  Country: SA (occurrence: SA)
  Receive Date: 20230419
  Receipt Date: 20230419
  Transmission Date: 20230721
  Serious: Yes (Other)
  Sender: FDA-Public Use
  Company Number: SA-BRISTOL-MYERS SQUIBB COMPANY-2023-054854

PATIENT
  Age: 3 Year
  Sex: Male

DRUGS (2)
  1. TRIAMCINOLONE ACETONIDE [Suspect]
     Active Substance: TRIAMCINOLONE ACETONIDE
     Indication: Exudative retinopathy
  2. TRIAMCINOLONE ACETONIDE [Suspect]
     Active Substance: TRIAMCINOLONE ACETONIDE

REACTIONS (3)
  - Cataract [Unknown]
  - Off label use [Unknown]
  - Corneal opacity [Unknown]
